FAERS Safety Report 19531344 (Version 1)
Quarter: 2021Q3

REPORT INFORMATION
  Report Type: Spontaneous
  Country: NL (occurrence: NL)
  Receive Date: 20210713
  Receipt Date: 20210713
  Transmission Date: 20211014
  Serious: Yes (Hospitalization, Other)
  Sender: FDA-Public Use
  Company Number: NVSC2021NL150167

PATIENT
  Age: 52 Year
  Sex: Male

DRUGS (3)
  1. CLINDAMYCIN. [Suspect]
     Active Substance: CLINDAMYCIN
     Indication: RASH
     Dosage: 6 DF, QD
     Route: 065
     Dates: start: 20200616
  2. AMOXICILLINE/CLAVULAANZUUR [Suspect]
     Active Substance: AMOXICILLIN\CLAVULANATE POTASSIUM
     Indication: PRODUCT USED FOR UNKNOWN INDICATION
     Dosage: UNK
     Route: 065
     Dates: start: 20200613, end: 20200614
  3. TAVEGIL [Suspect]
     Active Substance: CLEMASTINE FUMARATE
     Indication: RASH
     Dosage: UNK
     Route: 065
     Dates: start: 20200616

REACTIONS (13)
  - Infection [Recovered/Resolved]
  - Skin irritation [Not Recovered/Not Resolved]
  - Scratch [Not Recovered/Not Resolved]
  - Energy increased [Not Recovered/Not Resolved]
  - Condition aggravated [Unknown]
  - Pain [Not Recovered/Not Resolved]
  - Drug ineffective [Unknown]
  - Hypersensitivity [Unknown]
  - Rash vesicular [Not Recovered/Not Resolved]
  - Pruritus [Recovering/Resolving]
  - Incorrect product administration duration [Unknown]
  - Burning sensation [Not Recovered/Not Resolved]
  - Skin exfoliation [Not Recovered/Not Resolved]

NARRATIVE: CASE EVENT DATE: 202006
